FAERS Safety Report 13214450 (Version 1)
Quarter: 2017Q1

REPORT INFORMATION
  Report Type: Spontaneous
  Country: US (occurrence: US)
  Receive Date: 20170210
  Receipt Date: 20170210
  Transmission Date: 20170428
  Serious: Yes (Hospitalization)
  Sender: FDA-Public Use
  Company Number: US-ELI_LILLY_AND_COMPANY-US201702002586

PATIENT
  Sex: Female

DRUGS (1)
  1. HUMALOG [Suspect]
     Active Substance: INSULIN LISPRO
     Indication: DIABETES MELLITUS
     Dosage: UNK, QID
     Route: 065
     Dates: start: 2012

REACTIONS (5)
  - Complication associated with device [Unknown]
  - Medical device pain [Unknown]
  - Dysuria [Unknown]
  - Malaise [Unknown]
  - Nephrolithiasis [Unknown]
